FAERS Safety Report 16763700 (Version 3)
Quarter: 2019Q4

REPORT INFORMATION
  Report Type: Spontaneous
  Country: JP (occurrence: JP)
  Receive Date: 20190902
  Receipt Date: 20191112
  Transmission Date: 20200122
  Serious: Yes (Hospitalization, Other)
  Sender: FDA-Public Use
  Company Number: JP-GLAXOSMITHKLINE-JP2019JPN152471

PATIENT
  Age: 17 Year
  Sex: Male
  Weight: 46 kg

DRUGS (3)
  1. FLOLAN [Suspect]
     Active Substance: EPOPROSTENOL SODIUM
     Dosage: 47.2 NG/KG, UNK
     Route: 042
  2. TRACLEER TABLETS [Concomitant]
     Indication: PULMONARY ARTERIAL HYPERTENSION
     Dosage: 31.25 MG, BID
     Dates: start: 2005
  3. FLOLAN [Suspect]
     Active Substance: EPOPROSTENOL SODIUM
     Indication: PULMONARY ARTERIAL HYPERTENSION
     Dosage: UNK NG/KG, UNK
     Route: 042
     Dates: start: 20040318

REACTIONS (9)
  - Chest pain [Recovering/Resolving]
  - Tricuspid valve incompetence [Unknown]
  - Fatigue [Recovering/Resolving]
  - Pulmonary arterial hypertension [Recovering/Resolving]
  - Hyperthyroidism [Recovered/Resolved]
  - Condition aggravated [Recovering/Resolving]
  - Goitre [Unknown]
  - Dyspnoea [Recovering/Resolving]
  - Cardiomegaly [Unknown]

NARRATIVE: CASE EVENT DATE: 20120324
